FAERS Safety Report 6308111-0 (Version None)
Quarter: 2009Q3

REPORT INFORMATION
  Report Type: 
  Country: None (occurrence: None)
  Receive Date: 20090813
  Receipt Date: 20090804
  Transmission Date: 20100115
  Serious: Yes (Hospitalization)
  Sender: FDA-Public Use
  Company Number: JP-AMGEN-US359185

PATIENT
  Age: 66 Year
  Sex: Female

DRUGS (6)
  1. ENBREL [Suspect]
     Indication: RHEUMATOID ARTHRITIS
     Route: 058
     Dates: end: 20090715
  2. OMEPRAL [Concomitant]
     Dosage: UNSPECIFIED
     Route: 048
  3. FOLIAMIN [Concomitant]
     Route: 048
  4. BONALON [Concomitant]
     Dosage: UNSPECIFIED
     Route: 048
  5. METHOTREXATE [Concomitant]
     Route: 048
     Dates: end: 20090721
  6. PREDNISOLONE [Concomitant]
     Route: 048
     Dates: end: 20090721

REACTIONS (2)
  - PNEUMOCYSTIS JIROVECI PNEUMONIA [None]
  - PSEUDOMONAS INFECTION [None]
